FAERS Safety Report 7917399-1 (Version None)
Quarter: 2011Q4

REPORT INFORMATION
  Report Type: 
  Country: None (occurrence: None)
  Receive Date: 20111116
  Receipt Date: 20111107
  Transmission Date: 20120403
  Serious: Yes (Hospitalization, Other)
  Sender: FDA-Public Use
  Company Number: US-BAXTER-2011BH035457

PATIENT
  Age: 69 Year
  Sex: Female

DRUGS (2)
  1. DIANEAL [Suspect]
     Indication: PERITONEAL DIALYSIS
     Route: 033
     Dates: end: 20111108
  2. DIANEAL [Suspect]
     Route: 033
     Dates: end: 20111108

REACTIONS (2)
  - NONINFECTIOUS PERITONITIS [None]
  - ABDOMINAL DISTENSION [None]
